FAERS Safety Report 20671489 (Version 4)
Quarter: 2022Q2

REPORT INFORMATION
  Report Type: Spontaneous
  Country: US (occurrence: US)
  Receive Date: 20220404
  Receipt Date: 20220614
  Transmission Date: 20220721
  Serious: No
  Sender: FDA-Public Use
  Company Number: US-009507513-2203USA005713

PATIENT
  Sex: Male
  Weight: 64.399 kg

DRUGS (1)
  1. JANUMET [Suspect]
     Active Substance: METFORMIN HYDROCHLORIDE\SITAGLIPTIN PHOSPHATE
     Indication: Type 2 diabetes mellitus
     Dosage: 50/1000 MG, TWICE A DAY
     Route: 048
     Dates: start: 1990

REACTIONS (2)
  - Product dose omission issue [Unknown]
  - No adverse event [Unknown]
